APPROVED DRUG PRODUCT: DIAMOX
Active Ingredient: ACETAZOLAMIDE SODIUM
Strength: EQ 500MG BASE/VIAL **Federal Register determination that product was not discontinued or withdrawn for safety or effectiveness reasons**
Dosage Form/Route: INJECTABLE;INJECTION
Application: N009388 | Product #001
Applicant: TEVA WOMENS HEALTH INC
Approved: Approved Prior to Jan 1, 1982 | RLD: Yes | RS: No | Type: DISCN